FAERS Safety Report 8420919-4 (Version None)
Quarter: 2012Q2

REPORT INFORMATION
  Report Type: 
  Country: None (occurrence: None)
  Receive Date: 20120608
  Receipt Date: 20120605
  Transmission Date: 20120825
  Serious: Yes (Other)
  Sender: FDA-Public Use
  Company Number: US-PFIZER INC-2012135233

PATIENT
  Sex: Male
  Weight: 104.31 kg

DRUGS (6)
  1. PRISTIQ [Suspect]
     Indication: OBSESSIVE-COMPULSIVE DISORDER
     Dosage: 50 MG, DAILY
     Route: 048
     Dates: start: 20120301
  2. PRISTIQ [Suspect]
     Dosage: 50 MG, ALTERNATE DAY
     Route: 048
     Dates: start: 20120101
  3. LUNESTA [Concomitant]
     Indication: SLEEP DISORDER
     Dosage: UNK
  4. VYVANSE [Concomitant]
     Indication: ATTENTION DEFICIT/HYPERACTIVITY DISORDER
     Dosage: 40 MG, DAILY
  5. PRISTIQ [Suspect]
     Dosage: 50 MG, ALTERNATE DAY
     Route: 048
     Dates: start: 20120101
  6. PRISTIQ [Suspect]
     Dosage: 50 MG, DAILY
     Route: 048
     Dates: start: 20120516

REACTIONS (5)
  - IMPAIRED WORK ABILITY [None]
  - DRUG DEPENDENCE [None]
  - ANXIETY [None]
  - FEELING ABNORMAL [None]
  - CONFUSIONAL STATE [None]
